FAERS Safety Report 20433975 (Version 6)
Quarter: 2022Q2

REPORT INFORMATION
  Report Type: Report from Study
  Country: US (occurrence: None)
  Receive Date: 20220205
  Receipt Date: 20220513
  Transmission Date: 20220721
  Serious: Yes (Hospitalization)
  Sender: FDA-Public Use
  Company Number: US-ROCHE-3011678

PATIENT
  Age: 59 Year
  Sex: Female
  Weight: 60.1 kg

DRUGS (19)
  1. IPATASERTIB [Suspect]
     Active Substance: IPATASERTIB
     Indication: Neoplasm
     Dosage: MOST RECENT DOSE LAST STUDY DRUG ADMIN PRIOR AE/SAE IS 400 MG ON 20/JAN/2022.
     Route: 048
     Dates: start: 20220106
  2. ATEZOLIZUMAB [Suspect]
     Active Substance: ATEZOLIZUMAB
     Indication: Neoplasm
     Dosage: MOST RECENT DOSE LAST ATEZOLIZUMAB ADMIN PRIOR AE/SAE IS 1200 MG ON 06/JAN/2022.
     Route: 041
     Dates: start: 20220106
  3. ASPIRIN [Concomitant]
     Active Substance: ASPIRIN
     Indication: Prophylaxis
     Dosage: DOSE REPORTED AS MG. ONGOING: YES
     Route: 048
     Dates: start: 2003
  4. MELOXICAM [Concomitant]
     Active Substance: MELOXICAM
     Indication: Arthralgia
     Dosage: DOSE REPORTED AS MG. ONGOING: YES
     Route: 048
     Dates: start: 2013
  5. GLIMEPIRIDE [Concomitant]
     Active Substance: GLIMEPIRIDE
     Indication: Diabetes mellitus
     Dosage: DOSE REPORTED AS MG. ONGOING: YES
     Route: 048
     Dates: start: 201012
  6. GLUCOPHAGE XR [Concomitant]
     Active Substance: METFORMIN HYDROCHLORIDE
     Indication: Diabetes mellitus
     Dosage: DOSE REPORTED AS MG. ONGOING: YES
     Route: 048
     Dates: start: 201012
  7. FLONASE ALLERGY RELIEF [Concomitant]
     Active Substance: FLUTICASONE PROPIONATE
     Indication: Seasonal allergy
     Dosage: DOSE: UG; ONGOING: YES
     Route: 045
     Dates: start: 2013
  8. PANTOPRAZOLE [Concomitant]
     Active Substance: PANTOPRAZOLE
     Indication: Gastrooesophageal reflux disease
     Dosage: DOSE: MG; ONGOING: YES
     Route: 048
     Dates: start: 2006
  9. FLAXSEED [Concomitant]
     Active Substance: FLAX SEED
     Dosage: DOSE: MG; ONGOING: YES
     Route: 048
     Dates: start: 2013
  10. XARELTO [Concomitant]
     Active Substance: RIVAROXABAN
     Indication: Deep vein thrombosis
     Dosage: DOSE: MG; ONGOING: YES
     Route: 048
     Dates: start: 20190712
  11. NEURONTIN [Concomitant]
     Active Substance: GABAPENTIN
     Indication: Neuropathy peripheral
     Dosage: DOSE: MG; ONGOING: YES
     Route: 048
     Dates: start: 20190712
  12. TRAMADOL [Concomitant]
     Active Substance: TRAMADOL
     Indication: Arthralgia
     Dosage: DOSE: MG; ONGOING: YES
     Route: 048
     Dates: start: 20190407
  13. LASIX [Concomitant]
     Active Substance: FUROSEMIDE
     Indication: Oedema peripheral
     Dosage: DOSE: MG; ONGOING: YES
     Route: 048
     Dates: start: 20210615
  14. KYTRIL [Concomitant]
     Active Substance: GRANISETRON HYDROCHLORIDE
     Indication: Nausea
     Dosage: DOSE: MG; ONGOING : YES
     Route: 048
     Dates: start: 20211028
  15. BUMEX [Concomitant]
     Active Substance: BUMETANIDE
     Indication: Oedema peripheral
     Route: 048
     Dates: start: 20210701
  16. SODIUM CHLORIDE [Concomitant]
     Active Substance: SODIUM CHLORIDE
     Indication: Dehydration
     Route: 042
     Dates: start: 20220121
  17. PREDNISONE [Concomitant]
     Active Substance: PREDNISONE
     Indication: Arthralgia
     Dosage: DOSE FORM TABLET
     Route: 048
     Dates: start: 20220120, end: 20220121
  18. PREDNISONE [Concomitant]
     Active Substance: PREDNISONE
     Indication: Rash
     Route: 048
     Dates: start: 20220122, end: 20220130
  19. HYDROCORTISONE [Concomitant]
     Active Substance: HYDROCORTISONE
     Indication: Rash
     Route: 061
     Dates: start: 20210316

REACTIONS (1)
  - Confusional state [Recovered/Resolved]

NARRATIVE: CASE EVENT DATE: 20220121
